FAERS Safety Report 7611263-3 (Version None)
Quarter: 2011Q3

REPORT INFORMATION
  Report Type: 
  Country: None (occurrence: None)
  Receive Date: 20110715
  Receipt Date: 20110713
  Transmission Date: 20111222
  Serious: Yes (Hospitalization, Other)
  Sender: FDA-Public Use
  Company Number: US-PFIZER INC-2011081114

PATIENT
  Sex: Female

DRUGS (3)
  1. CHANTIX [Suspect]
     Indication: SMOKING CESSATION THERAPY
     Dosage: 1 MG, 2X/DAY
     Dates: start: 20070928, end: 20080401
  2. FLONASE [Concomitant]
     Indication: HYPERSENSITIVITY
     Dosage: UNK
     Dates: start: 20050101
  3. LORATADINE [Concomitant]
     Indication: HYPERSENSITIVITY
     Dosage: UNK
     Dates: start: 20050101

REACTIONS (7)
  - ANXIETY [None]
  - AGGRESSION [None]
  - DEPRESSION [None]
  - SUICIDE ATTEMPT [None]
  - ABNORMAL BEHAVIOUR [None]
  - INTENTIONAL OVERDOSE [None]
  - HOSTILITY [None]
